FAERS Safety Report 17814124 (Version 3)
Quarter: 2020Q2

REPORT INFORMATION
  Report Type: Report from Study
  Country: None (occurrence: US)
  Receive Date: 20200522
  Receipt Date: 20200628
  Transmission Date: 20200714
  Serious: Yes (Other)
  Sender: FDA-Public Use
  Company Number: US-ABBVIE-20K-163-3273866-00

PATIENT
  Sex: Male
  Weight: 64.92 kg

DRUGS (3)
  1. HUMIRA [Suspect]
     Active Substance: ADALIMUMAB
     Indication: RHEUMATOID ARTHRITIS
     Route: 058
     Dates: start: 201507
  2. HUMIRA [Suspect]
     Active Substance: ADALIMUMAB
     Indication: PSORIASIS
     Route: 058
  3. METHOTREXATE. [Concomitant]
     Active Substance: METHOTREXATE
     Indication: RHEUMATOID ARTHRITIS

REACTIONS (13)
  - Pain [Recovered/Resolved]
  - Limb mass [Recovered/Resolved]
  - Arthralgia [Recovering/Resolving]
  - Exostosis [Recovered/Resolved]
  - Calcinosis [Recovered/Resolved]
  - Insomnia [Unknown]
  - Tendonitis [Recovering/Resolving]
  - Tendon rupture [Unknown]
  - Musculoskeletal discomfort [Recovering/Resolving]
  - Arthralgia [Recovered/Resolved]
  - Postoperative adhesion [Unknown]
  - Medical device removal [Recovered/Resolved]
  - Haemorrhage [Recovered/Resolved]

NARRATIVE: CASE EVENT DATE: 2019
